FAERS Safety Report 18206497 (Version 1)
Quarter: 2020Q3

REPORT INFORMATION
  Report Type: Report from Study
  Country: None (occurrence: CA)
  Receive Date: 20200828
  Receipt Date: 20200828
  Transmission Date: 20201103
  Serious: Yes (Other)
  Sender: FDA-Public Use
  Company Number: CA-HLS-202001202

PATIENT
  Age: 26 Year
  Sex: Female

DRUGS (1)
  1. CLOZARIL [Suspect]
     Active Substance: CLOZAPINE
     Indication: PRODUCT USED FOR UNKNOWN INDICATION
     Dosage: 75.0 MILLIGRAM
     Route: 048

REACTIONS (10)
  - C-reactive protein increased [Unknown]
  - Pulmonary embolism [Unknown]
  - Rhinorrhoea [Unknown]
  - Eosinophil count increased [Unknown]
  - White blood cell count increased [Unknown]
  - Asthenia [Unknown]
  - Cough [Unknown]
  - Neutrophil count increased [Unknown]
  - Oropharyngeal pain [Unknown]
  - Pain [Unknown]
